FAERS Safety Report 8926935 (Version 2)
Quarter: 2013Q1

REPORT INFORMATION
  Report Type: Report from Study
  Country: GB (occurrence: GB)
  Receive Date: 20121127
  Receipt Date: 20130222
  Transmission Date: 20140127
  Serious: Yes (Death)
  Sender: FDA-Public Use
  Company Number: GB-ROCHE-1160150

PATIENT
  Age: 72 Year
  Sex: Female
  Weight: 79.4 kg

DRUGS (13)
  1. BEVACIZUMAB [Suspect]
     Indication: COLORECTAL CANCER METASTATIC
     Route: 042
     Dates: start: 20121023, end: 20121122
  2. BENDROFLUMETHIAZIDE [Concomitant]
     Indication: HYPERTENSION
     Route: 048
     Dates: end: 20121119
  3. AMLODIPINE [Concomitant]
     Indication: HYPERTENSION
     Route: 048
     Dates: end: 20121119
  4. ATORVASTATIN [Concomitant]
     Indication: BLOOD CHOLESTEROL INCREASED
     Route: 048
     Dates: end: 20121119
  5. DEXAMETHASONE [Concomitant]
     Route: 048
     Dates: start: 20121002, end: 20121002
  6. DEXAMETHASONE [Concomitant]
     Route: 048
     Dates: start: 20121003, end: 20121005
  7. DEXAMETHASONE [Concomitant]
     Route: 048
     Dates: start: 20121023, end: 20121023
  8. DEXAMETHASONE [Concomitant]
     Route: 048
     Dates: start: 20121024, end: 20121026
  9. ONDANSETRON [Concomitant]
     Route: 048
     Dates: start: 20121002, end: 20121002
  10. ONDANSETRON [Concomitant]
     Route: 065
     Dates: start: 20121023, end: 20121023
  11. METOCLOPRAMIDE [Concomitant]
     Indication: NAUSEA
     Dosage: 10-20MG
     Route: 048
     Dates: start: 20121002, end: 20121122
  12. CODEINE PHOSPHATE [Concomitant]
     Indication: DIARRHOEA
     Dosage: 30-60MG
     Route: 048
     Dates: start: 20121002, end: 20121122
  13. LOPERAMIDE [Concomitant]
     Indication: DIARRHOEA
     Route: 048
     Dates: start: 20121002, end: 20121122

REACTIONS (2)
  - Small intestinal obstruction [Fatal]
  - Small intestinal perforation [Fatal]
